FAERS Safety Report 18281580 (Version 1)
Quarter: 2020Q3

REPORT INFORMATION
  Report Type: Report from Study
  Country: US (occurrence: US)
  Receive Date: 20200918
  Receipt Date: 20200918
  Transmission Date: 20201103
  Serious: Yes (Death)
  Sender: FDA-Public Use
  Company Number: NVSC2020US254628

PATIENT
  Sex: Male

DRUGS (1)
  1. MEKINIST [Suspect]
     Active Substance: TRAMETINIB DIMETHYL SULFOXIDE
     Indication: NEOPLASM MALIGNANT
     Dosage: 2 MG, BID (TAKE 1 TABLET BY EVERY DAY ON AN EMPTY STOMACH 1 HOUR BEFORE OR 2 HOUR AFTER A MEAL)
     Route: 048

REACTIONS (1)
  - Death [Fatal]
